FAERS Safety Report 8058253-7 (Version None)
Quarter: 2012Q1

REPORT INFORMATION
  Report Type: 
  Country: None (occurrence: None)
  Receive Date: 20120112
  Receipt Date: 20120103
  Transmission Date: 20120608
  Serious: Yes (Hospitalization, Other)
  Sender: FDA-Public Use
  Company Number: 2012SP000573

PATIENT
  Age: 38 Year
  Sex: Female
  Weight: 66 kg

DRUGS (2)
  1. CERAZETTE (DESOGESTREL /00754001/) [Suspect]
     Indication: CONTRACEPTION
     Dosage: QD; PO
     Route: 048
     Dates: start: 20090501, end: 20100101
  2. DICLIN [Concomitant]

REACTIONS (3)
  - PANCREATIC CYST [None]
  - HEPATIC CYST [None]
  - FATIGUE [None]
